FAERS Safety Report 14308254 (Version 4)
Quarter: 2018Q2

REPORT INFORMATION
  Report Type: Spontaneous
  Country: US (occurrence: US)
  Receive Date: 20171220
  Receipt Date: 20180411
  Transmission Date: 20180711
  Serious: No
  Sender: FDA-Public Use
  Company Number: US-ACTELION-A-US2017-164418

PATIENT
  Age: 68 Year
  Sex: Female
  Weight: 147.39 kg

DRUGS (4)
  1. ADEMPAS [Concomitant]
     Active Substance: RIOCIGUAT
     Dosage: UNK
     Route: 048
     Dates: end: 20171130
  2. XARELTO [Concomitant]
     Active Substance: RIVAROXABAN
  3. ADEMPAS [Concomitant]
     Active Substance: RIOCIGUAT
     Dosage: 2.5 MG, TID
     Route: 048
     Dates: start: 20171201
  4. OPSUMIT [Suspect]
     Active Substance: MACITENTAN
     Indication: PULMONARY ARTERIAL HYPERTENSION
     Dosage: 10 MG, QD
     Route: 048

REACTIONS (22)
  - Dizziness [Unknown]
  - Decreased activity [Unknown]
  - Insomnia [Unknown]
  - Nasal congestion [Unknown]
  - Asthenia [Unknown]
  - Abdominal pain upper [Unknown]
  - Decreased appetite [Unknown]
  - Back pain [Unknown]
  - Oxygen saturation decreased [Recovering/Resolving]
  - Drug dose omission [Unknown]
  - Diarrhoea [Unknown]
  - Lacrimation increased [Unknown]
  - Eye discharge [Unknown]
  - Fibromyalgia [Unknown]
  - Hypokinesia [Unknown]
  - Fall [Unknown]
  - Heart rate increased [Unknown]
  - Anxiety [Unknown]
  - Condition aggravated [Unknown]
  - Intervertebral disc degeneration [Unknown]
  - Back disorder [Unknown]
  - Fatigue [Unknown]

NARRATIVE: CASE EVENT DATE: 201803
